FAERS Safety Report 4755538-4 (Version None)
Quarter: 2005Q3

REPORT INFORMATION
  Report Type: 
  Country: None (occurrence: None)
  Receive Date: 20050830
  Receipt Date: 20050511
  Transmission Date: 20060218
  Serious: Yes (Hospitalization, Other)
  Sender: FDA-Public Use
  Company Number: US-BRISTOL-MYERS SQUIBB COMPANY-12963591

PATIENT
  Age: 21 Year
  Sex: Male
  Weight: 86 kg

DRUGS (4)
  1. ABILIFY [Suspect]
  2. CLONAZEPAM [Concomitant]
  3. LITHIUM [Concomitant]
  4. TRILEPTAL [Concomitant]

REACTIONS (2)
  - BLOOD GLUCOSE DECREASED [None]
  - WEIGHT DECREASED [None]
